FAERS Safety Report 6410693-5 (Version None)
Quarter: 2009Q4

REPORT INFORMATION
  Report Type: 
  Country: None (occurrence: None)
  Receive Date: 20091020
  Receipt Date: 20091020
  Transmission Date: 20100525
  Serious: Yes (Hospitalization)
  Sender: FDA-Public Use
  Company Number: None

PATIENT
  Sex: Male
  Weight: 79.09 kg

DRUGS (3)
  1. XELODA [Suspect]
     Dosage: 3300 MG
  2. CAMPTOSAR [Suspect]
     Dosage: 300 MG
  3. ELOXATIN [Suspect]
     Dosage: 200 MG

REACTIONS (4)
  - DEHYDRATION [None]
  - DIARRHOEA [None]
  - NAUSEA [None]
  - VOMITING [None]
